FAERS Safety Report 9405689 (Version 1)
Quarter: 2013Q3

REPORT INFORMATION
  Report Type: Spontaneous
  Country: US (occurrence: US)
  Receive Date: 20130717
  Receipt Date: 20130717
  Transmission Date: 20140515
  Serious: No
  Sender: FDA-Public Use
  Company Number: US-009507513-1306USA014206

PATIENT
  Sex: Female

DRUGS (1)
  1. PEGINTRON [Suspect]
     Dosage: 50/0.5 REDIPEN

REACTIONS (3)
  - Underdose [Unknown]
  - Product quality issue [Unknown]
  - Product quality issue [Unknown]
